FAERS Safety Report 16266710 (Version 2)
Quarter: 2019Q2

REPORT INFORMATION
  Report Type: Spontaneous
  Country: US (occurrence: US)
  Receive Date: 20190502
  Receipt Date: 20190530
  Transmission Date: 20190711
  Serious: Yes (Hospitalization)
  Sender: FDA-Public Use
  Company Number: US-VERTEX PHARMACEUTICALS-2019-003836

PATIENT
  Age: 33 Year
  Sex: Male

DRUGS (14)
  1. SYMDEKO [Suspect]
     Active Substance: IVACAFTOR\TEZACAFTOR
     Indication: CYSTIC FIBROSIS
     Dosage: 100MG TEZACAFTOR/150MG IVACAFTOR AM; 150MG IVACAFTOR PM
     Route: 048
     Dates: start: 20180317
  2. MYCOPHENOLATE [Concomitant]
     Active Substance: MYCOPHENOLIC ACID
  3. ZENPEP [Concomitant]
     Active Substance: PANCRELIPASE AMYLASE\PANCRELIPASE LIPASE\PANCRELIPASE PROTEASE
  4. PREDNISONE. [Concomitant]
     Active Substance: PREDNISONE
  5. SENNA                              /00142201/ [Concomitant]
     Active Substance: SENNA LEAF
  6. SMZ-TMP [Concomitant]
     Active Substance: SULFAMETHOXAZOLE\TRIMETHOPRIM
  7. CIPROFLOXACIN. [Concomitant]
     Active Substance: CIPROFLOXACIN
  8. VORICONAZOLE. [Concomitant]
     Active Substance: VORICONAZOLE
  9. TOBI [Concomitant]
     Active Substance: TOBRAMYCIN
  10. TACROLIMUS. [Concomitant]
     Active Substance: TACROLIMUS
  11. PANTOPRAZOLE [Concomitant]
     Active Substance: PANTOPRAZOLE
  12. GABAPENTIN. [Concomitant]
     Active Substance: GABAPENTIN
  13. VALGANCICLOVIR. [Concomitant]
     Active Substance: VALGANCICLOVIR
  14. ACYCLOVIR                          /00587301/ [Concomitant]
     Active Substance: ACYCLOVIR

REACTIONS (1)
  - Cystic fibrosis [Unknown]

NARRATIVE: CASE EVENT DATE: 20190413
